FAERS Safety Report 6139521-2 (Version None)
Quarter: 2009Q1

REPORT INFORMATION
  Report Type: 
  Country: None (occurrence: None)
  Receive Date: 20090327
  Receipt Date: 20081209
  Transmission Date: 20090719
  Serious: Yes (Hospitalization)
  Sender: FDA-Public Use
  Company Number: 8040233

PATIENT
  Age: 15 Year
  Sex: Female

DRUGS (1)
  1. XYZAL [Suspect]
     Indication: URTICARIA

REACTIONS (1)
  - GRAND MAL CONVULSION [None]
